FAERS Safety Report 4277681-9 (Version None)
Quarter: 2004Q1

REPORT INFORMATION
  Report Type: 
  Country: None (occurrence: None)
  Receive Date: 20040121
  Receipt Date: 20040105
  Transmission Date: 20041129
  Serious: Yes (Other)
  Sender: FDA-Public Use
  Company Number: GBS031114006

PATIENT
  Age: 30 Year
  Sex: Male
  Weight: 61 kg

DRUGS (4)
  1. ZYPREXA [Suspect]
     Indication: MENTAL DISORDER
     Dosage: 7.5 MG/DAY
     Dates: start: 19970401, end: 20020901
  2. AMISULPRIDE [Concomitant]
  3. SULPIRIDE [Concomitant]
  4. QUETIAPINE [Concomitant]

REACTIONS (20)
  - ACTIVITIES OF DAILY LIVING IMPAIRED [None]
  - AGGRESSION [None]
  - ALCOHOLISM [None]
  - AMNESIA [None]
  - CHEST PAIN [None]
  - CHOKING [None]
  - COGNITIVE DISORDER [None]
  - DISTURBANCE IN ATTENTION [None]
  - DYSGRAPHIA [None]
  - HAEMORRHOIDS [None]
  - HOMELESS [None]
  - LOSS OF LIBIDO [None]
  - MARITAL PROBLEM [None]
  - MUSCLE SPASMS [None]
  - RECTAL HAEMORRHAGE [None]
  - SOMNOLENCE [None]
  - TARDIVE DYSKINESIA [None]
  - TIC [None]
  - TONGUE OEDEMA [None]
  - UNEMPLOYMENT [None]
